FAERS Safety Report 11875120 (Version 3)
Quarter: 2016Q1

REPORT INFORMATION
  Report Type: Spontaneous
  Country: US (occurrence: US)
  Receive Date: 20151229
  Receipt Date: 20160114
  Transmission Date: 20160526
  Serious: Yes (Hospitalization, Other)
  Sender: FDA-Public Use
  Company Number: US-BAYER-2015-492920

PATIENT
  Age: 64 Year
  Sex: Male
  Weight: 90.25 kg

DRUGS (1)
  1. ALEVE [Suspect]
     Active Substance: NAPROXEN SODIUM
     Indication: ARTHRITIS
     Dosage: UNK
     Dates: start: 2013, end: 2013

REACTIONS (5)
  - Blood pressure decreased [Recovered/Resolved]
  - Pulse absent [Recovered/Resolved]
  - Optic nerve injury [Not Recovered/Not Resolved]
  - Anaphylactic shock [Recovered/Resolved]
  - Loss of consciousness [Recovered/Resolved]

NARRATIVE: CASE EVENT DATE: 2013
